FAERS Safety Report 24298608 (Version 2)
Quarter: 2024Q4

REPORT INFORMATION
  Report Type: Spontaneous
  Country: CA (occurrence: CA)
  Receive Date: 20240909
  Receipt Date: 20241231
  Transmission Date: 20250114
  Serious: Yes (Other)
  Sender: B BRAUN
  Company Number: CA-B.Braun Medical Inc.-2161384

PATIENT
  Age: 66 Year
  Sex: Male

DRUGS (23)
  1. LIDOCAINE HYDROCHLORIDE [Suspect]
     Active Substance: LIDOCAINE HYDROCHLORIDE
  2. ASPIRIN [Suspect]
     Active Substance: ASPIRIN
  3. TRESIBA [Suspect]
     Active Substance: INSULIN DEGLUDEC
  4. SENNOSIDES [Suspect]
     Active Substance: SENNOSIDES
  5. PROCHLORPERAZINE [Suspect]
     Active Substance: PROCHLORPERAZINE
  6. PREDNISONE [Suspect]
     Active Substance: PREDNISONE
  7. ONDANSETRON [Suspect]
     Active Substance: ONDANSETRON
  8. LIDOCAINE HYDROCHLORIDE [Suspect]
     Active Substance: LIDOCAINE HYDROCHLORIDE
  9. INDOMETHACIN [Suspect]
     Active Substance: INDOMETHACIN
  10. CANDESARTAN [Suspect]
     Active Substance: CANDESARTAN
  11. AMOXICILLIN [Suspect]
     Active Substance: AMOXICILLIN
  12. ACETAMINOPHEN [Suspect]
     Active Substance: ACETAMINOPHEN
  13. ROSUVASTATIN CALCIUM [Suspect]
     Active Substance: ROSUVASTATIN CALCIUM
  14. POTASSIUM CHLORIDE [Suspect]
     Active Substance: POTASSIUM CHLORIDE
  15. PANTOPRAZOLE SODIUM [Suspect]
     Active Substance: PANTOPRAZOLE SODIUM
  16. OLANZAPINE [Suspect]
     Active Substance: OLANZAPINE
  17. METFORMIN [Suspect]
     Active Substance: METFORMIN HYDROCHLORIDE
  18. MAGNESIUM OXIDE [Suspect]
     Active Substance: MAGNESIUM OXIDE
  19. FLUCONAZOLE [Suspect]
     Active Substance: FLUCONAZOLE
  20. FILGRASTIM [Suspect]
     Active Substance: FILGRASTIM
  21. DIMENHYDRINATE [Suspect]
     Active Substance: DIMENHYDRINATE
  22. CIPROFLOXACIN LACTATE [Suspect]
     Active Substance: CIPROFLOXACIN LACTATE
  23. AMLODIPINE\TELMISARTAN [Suspect]
     Active Substance: AMLODIPINE\TELMISARTAN

REACTIONS (1)
  - Febrile neutropenia [Unknown]
